FAERS Safety Report 4698816-X (Version None)
Quarter: 2005Q2

REPORT INFORMATION
  Report Type: 
  Country: None (occurrence: None)
  Receive Date: 20050623
  Receipt Date: 20050616
  Transmission Date: 20051028
  Serious: Yes (Congenital Anomaly)
  Sender: FDA-Public Use
  Company Number: 05-06-1062

PATIENT
  Age: 21 Year
  Sex: Female

DRUGS (1)
  1. FLUOXETINE [Suspect]
     Indication: DEPRESSION
     Dosage: 20MG QD ORAL
     Route: 048

REACTIONS (5)
  - ANTERIOR CHAMBER CLEAVAGE SYNDROME [None]
  - CONGENITAL ANOMALY [None]
  - CONGENITAL MULTIPLEX ARTHROGRYPOSIS [None]
  - DRUG EXPOSURE DURING PREGNANCY [None]
  - PREGNANCY [None]
